FAERS Safety Report 9398754 (Version 2)
Quarter: 2013Q3

REPORT INFORMATION
  Report Type: Spontaneous
  Country: CA (occurrence: MX)
  Receive Date: 20130713
  Receipt Date: 20130826
  Transmission Date: 20140515
  Serious: Yes (Other)
  Sender: FDA-Public Use
  Company Number: CA-JNJFOC-20130702216

PATIENT
  Age: 44 Year
  Sex: Female
  Weight: 58.97 kg

DRUGS (3)
  1. REACTINE EXTRA STRENGTH [Suspect]
     Indication: PHOTOSENSITIVITY REACTION
     Dosage: AS NEEDED
     Route: 048
     Dates: start: 20060817, end: 20060823
  2. REACTINE EXTRA STRENGTH [Suspect]
     Indication: SOLAR URTICARIA
     Dosage: AS NEEDED
     Route: 048
     Dates: start: 20060817, end: 20060823
  3. EPINEPHRINE [Concomitant]
     Indication: ANAPHYLACTIC REACTION
     Route: 065

REACTIONS (4)
  - Loss of consciousness [Recovered/Resolved]
  - Head injury [Recovered/Resolved]
  - Syncope [Recovered/Resolved]
  - Dizziness [Recovered/Resolved]
